FAERS Safety Report 18664585 (Version 1)
Quarter: 2020Q4

REPORT INFORMATION
  Report Type: Spontaneous
  Country: BR (occurrence: BR)
  Receive Date: 20201225
  Receipt Date: 20201225
  Transmission Date: 20210114
  Serious: Yes (Life-Threatening, Hospitalization, Other)
  Sender: FDA-Public Use
  Company Number: BR-ACCORD-212270

PATIENT
  Age: 38 Year
  Sex: Female

DRUGS (1)
  1. CISPLATIN. [Suspect]
     Active Substance: CISPLATIN
     Indication: ADENOCARCINOMA OF THE CERVIX
     Dosage: CISPLATIN 40 MG/M2 WEEKLY
     Dates: start: 2018, end: 2018

REACTIONS (14)
  - Myocardial oedema [Recovered/Resolved]
  - Ventricular extrasystoles [Recovered/Resolved]
  - Pericardial effusion [Recovered/Resolved]
  - Ventricular hypokinesia [Recovered/Resolved]
  - Pericarditis [Recovered/Resolved]
  - Ventricular tachycardia [Recovered/Resolved]
  - Cardio-respiratory arrest [Recovered/Resolved]
  - Electrocardiogram QT prolonged [Recovered/Resolved]
  - Electrocardiogram ST segment elevation [Recovered/Resolved]
  - Left ventricular dysfunction [Recovered/Resolved]
  - Ventricular fibrillation [Recovered/Resolved]
  - Stress cardiomyopathy [Recovered/Resolved]
  - Autonomic nervous system imbalance [Recovered/Resolved]
  - Off label use [Unknown]

NARRATIVE: CASE EVENT DATE: 2018
